FAERS Safety Report 23898145 (Version 1)
Quarter: 2024Q2

REPORT INFORMATION
  Report Type: Spontaneous
  Country: FR (occurrence: None)
  Receive Date: 20240524
  Receipt Date: 20240524
  Transmission Date: 20240716
  Serious: Yes (Other)
  Sender: FDA-Public Use
  Company Number: 2024A121573

PATIENT
  Age: 64 Year
  Sex: Female

DRUGS (13)
  1. QUETIAPINE [Suspect]
     Active Substance: QUETIAPINE
     Dosage: THE EVENING/800 MG TO 1000 MG/D
     Route: 048
     Dates: start: 20240119
  2. QUETIAPINE [Suspect]
     Active Substance: QUETIAPINE
     Route: 048
  3. OLANZAPINE [Suspect]
     Active Substance: OLANZAPINE
  4. LITHIUM CARBONATE [Suspect]
     Active Substance: LITHIUM CARBONATE
     Dosage: 250 MG 4 PER DAY
     Route: 048
  5. LITHIUM CARBONATE [Suspect]
     Active Substance: LITHIUM CARBONATE
     Dosage: 1.5 TEASPOONS IN THE EVENING/400 MG/PRESCRIPTION FROM 03/2023/SUSTAINED RELEASE SCORED TABLET
     Route: 048
     Dates: start: 20230119
  6. LITHIUM CARBONATE [Suspect]
     Active Substance: LITHIUM CARBONATE
     Dosage: 5 TAKEN PER DAY (ON PRESCRIPTION FROM 02/2011)
     Route: 048
  7. CYAMEMAZINE [Suspect]
     Active Substance: CYAMEMAZINE
     Route: 048
     Dates: start: 20240119
  8. CYAMEMAZINE [Suspect]
     Active Substance: CYAMEMAZINE
     Dosage: 1 TSP AT BEDTIME
     Route: 048
  9. TRIMEPRAZINE [Suspect]
     Active Substance: TRIMEPRAZINE
     Dosage: 60 GT PER DAY
  10. ESCITALOPRAM OXALATE [Suspect]
     Active Substance: ESCITALOPRAM OXALATE
     Dates: start: 200904
  11. AMISULPRIDE [Suspect]
     Active Substance: AMISULPRIDE
  12. ZOPICLONE [Suspect]
     Active Substance: ZOPICLONE
     Dosage: BED TIME
  13. POLYETHYLENE GLYCOLS [Suspect]
     Active Substance: POLYETHYLENE GLYCOLS

REACTIONS (1)
  - Mixed liver injury [Not Recovered/Not Resolved]

NARRATIVE: CASE EVENT DATE: 20240329
